FAERS Safety Report 11496103 (Version 1)
Quarter: 2015Q3

REPORT INFORMATION
  Report Type: Spontaneous
  Country: IT (occurrence: IT)
  Receive Date: 20150911
  Receipt Date: 20150911
  Transmission Date: 20151125
  Serious: Yes (Hospitalization)
  Sender: FDA-Public Use
  Company Number: IT-SA-2015SA119260

PATIENT
  Age: 71 Year
  Sex: Male

DRUGS (8)
  1. PROCAPTAN [Concomitant]
     Active Substance: PERINDOPRIL ERBUMINE
  2. OMNIC [Concomitant]
     Active Substance: TAMSULOSIN HYDROCHLORIDE
  3. ACETYLSALICYLIC ACID [Suspect]
     Active Substance: ASPIRIN
     Route: 065
     Dates: start: 20140519, end: 20150519
  4. LEICESTER [Concomitant]
  5. RANITIDINE [Concomitant]
     Active Substance: RANITIDINE\RANITIDINE HYDROCHLORIDE
  6. RYTMONORM [Concomitant]
     Active Substance: PROPAFENONE
  7. CLOPIDOGREL BISULFATE. [Suspect]
     Active Substance: CLOPIDOGREL BISULFATE
     Route: 048
     Dates: start: 20140519, end: 20150519
  8. TORVAST [Concomitant]
     Active Substance: ATORVASTATIN

REACTIONS (2)
  - Urinary retention [Recovered/Resolved]
  - Haematuria [Recovered/Resolved]

NARRATIVE: CASE EVENT DATE: 20150519
